FAERS Safety Report 13998503 (Version 3)
Quarter: 2017Q4

REPORT INFORMATION
  Report Type: Report from Study
  Country: IL (occurrence: IL)
  Receive Date: 20170921
  Receipt Date: 20171010
  Transmission Date: 20180321
  Serious: Yes (Congenital Anomaly, Other)
  Sender: FDA-Public Use
  Company Number: IL-GILEAD-2017-0292597

PATIENT
  Age: 0 Year
  Sex: Male
  Weight: 2.9 kg

DRUGS (3)
  1. EMTRICITABINE/TENOFOVIR DISOPROXIL FUMARATE [Suspect]
     Active Substance: EMTRICITABINE\TENOFOVIR DISOPROXIL FUMARATE
     Indication: HIV INFECTION
     Dosage: 1 TAB/CAPS, QD
     Route: 064
     Dates: start: 20151108, end: 20160803
  2. PREZISTA [Suspect]
     Active Substance: DARUNAVIR ETHANOLATE
     Indication: HIV INFECTION
     Dosage: 1200 MG, QD
     Route: 064
     Dates: start: 20151108, end: 20160803
  3. NORVIR [Suspect]
     Active Substance: RITONAVIR
     Indication: HIV INFECTION
     Dosage: 200 MG, QD
     Route: 064
     Dates: start: 20151108, end: 20160803

REACTIONS (7)
  - Trisomy 21 [Not Recovered/Not Resolved]
  - Ventricular septal defect [Unknown]
  - Hypotonia [Unknown]
  - Foetal exposure during pregnancy [Recovered/Resolved]
  - Dextrocardia [Not Recovered/Not Resolved]
  - Lenticulostriatal vasculopathy [Not Recovered/Not Resolved]
  - Atrial septal defect [Unknown]

NARRATIVE: CASE EVENT DATE: 20151108
